FAERS Safety Report 8091144-4 (Version None)
Quarter: 2012Q1

REPORT INFORMATION
  Report Type: 
  Country: None (occurrence: None)
  Receive Date: 20120129
  Receipt Date: 20110921
  Transmission Date: 20120608
  Serious: Yes (Hospitalization)
  Sender: FDA-Public Use
  Company Number: US-ABBOTT-11P-163-0856556-00

PATIENT
  Sex: Female
  Weight: 106.69 kg

DRUGS (5)
  1. SAVELLA [Concomitant]
     Indication: FIBROMYALGIA
  2. LISINOPRIL AND HYDROCHLOROTHIAZIDE [Concomitant]
     Indication: HYPERTENSION
     Dosage: 20/12.5MG
  3. HUMIRA [Suspect]
     Indication: RHEUMATOID ARTHRITIS
     Route: 058
     Dates: start: 20060101, end: 20110801
  4. HUMIRA [Suspect]
     Route: 058
     Dates: start: 20110901
  5. FLEXERIL [Concomitant]
     Indication: FIBROMYALGIA

REACTIONS (1)
  - PNEUMONIA BACTERIAL [None]
